FAERS Safety Report 9054352 (Version 2)
Quarter: 2013Q1

REPORT INFORMATION
  Report Type: Spontaneous
  Country: CA (occurrence: CA)
  Receive Date: 20130208
  Receipt Date: 20130312
  Transmission Date: 20140127
  Serious: Yes (Hospitalization, Other)
  Sender: FDA-Public Use
  Company Number: CA-AMGEN-CANSP2013007183

PATIENT
  Age: 76 Year
  Sex: Female
  Weight: 59.09 kg

DRUGS (1)
  1. PROLIA [Suspect]
     Indication: OSTEOPOROSIS
     Dosage: 60 MG, UNK
     Dates: start: 20120810

REACTIONS (3)
  - Pelvic fracture [Unknown]
  - Hypotension [Unknown]
  - Fall [Unknown]
